FAERS Safety Report 22084817 (Version 1)
Quarter: 2023Q1

REPORT INFORMATION
  Report Type: Spontaneous
  Country: US (occurrence: US)
  Receive Date: 20230310
  Receipt Date: 20230310
  Transmission Date: 20230418
  Serious: No
  Sender: FDA-Public Use
  Company Number: US-PFIZER INC-PV202300016643

PATIENT
  Age: 68 Year
  Sex: Female

DRUGS (1)
  1. XELJANZ [Suspect]
     Active Substance: TOFACITINIB CITRATE
     Indication: Crohn^s disease
     Dosage: 15 MG, DAILY (1 TAB IN AM AND 2 TABS IN PM)
     Route: 048
     Dates: start: 20190106

REACTIONS (2)
  - Anorectal disorder [Unknown]
  - Off label use [Unknown]
